FAERS Safety Report 8565060 (Version 2)
Quarter: 2013Q3

REPORT INFORMATION
  Report Type: Spontaneous
  Country: US (occurrence: US)
  Receive Date: 20120516
  Receipt Date: 20130909
  Transmission Date: 20140515
  Serious: Yes (Hospitalization)
  Sender: FDA-Public Use
  Company Number: US-BRISTOL-MYERS SQUIBB COMPANY-16580763

PATIENT
  Age: 16 Year
  Sex: Female

DRUGS (5)
  1. ABILIFY [Suspect]
     Indication: BIPOLAR DISORDER
     Dosage: DOSE INCREASED TO 10MG AND DECREASED TO 5MG
  2. TRAZODONE HCL [Suspect]
  3. PROZAC [Suspect]
  4. LAMICTAL [Suspect]
  5. ZOLOFT [Suspect]

REACTIONS (5)
  - Suicidal ideation [Unknown]
  - Thinking abnormal [Not Recovered/Not Resolved]
  - Hypomania [Unknown]
  - Weight increased [Unknown]
  - Hiccups [Unknown]
